FAERS Safety Report 24952431 (Version 1)
Quarter: 2025Q1

REPORT INFORMATION
  Report Type: Spontaneous
  Country: TR (occurrence: TR)
  Receive Date: 20250210
  Receipt Date: 20250210
  Transmission Date: 20250408
  Serious: No
  Sender: ASTELLAS
  Company Number: TR-ASTELLAS-2025-AER-007333

PATIENT
  Sex: Female

DRUGS (2)
  1. VESICARE [Suspect]
     Active Substance: SOLIFENACIN SUCCINATE
     Indication: Cystitis interstitial
     Route: 065
  2. VESICARE [Suspect]
     Active Substance: SOLIFENACIN SUCCINATE
     Route: 065

REACTIONS (5)
  - Dyspnoea [Unknown]
  - Suspected counterfeit product [Unknown]
  - Therapeutic product effect decreased [Unknown]
  - Off label use [Unknown]
  - Wrong technique in product usage process [Unknown]
